FAERS Safety Report 15402882 (Version 1)
Quarter: 2018Q3

REPORT INFORMATION
  Report Type: Spontaneous
  Country: US (occurrence: US)
  Receive Date: 20180917
  Receipt Date: 20180917
  Transmission Date: 20181010
  Serious: Yes (Other)
  Sender: FDA-Public Use
  Company Number: None

PATIENT
  Age: 68 Year
  Sex: Male
  Weight: 85.5 kg

DRUGS (5)
  1. ENALAPRIL [Concomitant]
     Active Substance: ENALAPRIL
  2. CIPROFLOXACIN. [Concomitant]
     Active Substance: CIPROFLOXACIN
  3. CAPECITABINE. [Suspect]
     Active Substance: CAPECITABINE
     Indication: RECTAL CANCER
     Dates: start: 20180718
  4. DILTIAZEM. [Concomitant]
     Active Substance: DILTIAZEM
  5. LASIX [Concomitant]
     Active Substance: FUROSEMIDE

REACTIONS (4)
  - Nausea [None]
  - Drug intolerance [None]
  - Vomiting [None]
  - Drug dose omission [None]

NARRATIVE: CASE EVENT DATE: 20180917
